FAERS Safety Report 25451133 (Version 1)
Quarter: 2025Q2

REPORT INFORMATION
  Report Type: Spontaneous
  Country: US (occurrence: None)
  Receive Date: 20250618
  Receipt Date: 20250618
  Transmission Date: 20250716
  Serious: Yes (Other)
  Sender: FDA-CTU
  Company Number: None

PATIENT
  Age: 62 Year
  Sex: Female
  Weight: 87.75 kg

DRUGS (5)
  1. QSYMIA [Suspect]
     Active Substance: PHENTERMINE HYDROCHLORIDE\TOPIRAMATE
     Indication: Weight control
     Route: 048
     Dates: start: 20250102, end: 20250611
  2. FAMOTIDINE [Concomitant]
     Active Substance: FAMOTIDINE
  3. METAMUCIL FIBER [Concomitant]
  4. PROBIOTICS GUMMIES MULTI+OMEGA [Concomitant]
  5. TYLENOL AND TYLENOL PM [Concomitant]

REACTIONS (1)
  - Alopecia [None]

NARRATIVE: CASE EVENT DATE: 20250530
